FAERS Safety Report 25767544 (Version 1)
Quarter: 2025Q3

REPORT INFORMATION
  Report Type: Spontaneous
  Country: CH (occurrence: CH)
  Receive Date: 20250905
  Receipt Date: 20250905
  Transmission Date: 20251020
  Serious: Yes (Hospitalization, Other)
  Sender: MYLAN
  Company Number: None

PATIENT
  Age: 35 Year
  Sex: Female

DRUGS (8)
  1. CYKLOKAPRON [Suspect]
     Active Substance: TRANEXAMIC ACID
     Indication: Haemorrhage prophylaxis
     Dosage: 1 GRAM, BID (TWICE DAILY)
     Dates: start: 20250218, end: 20250223
  2. CYKLOKAPRON [Suspect]
     Active Substance: TRANEXAMIC ACID
     Dosage: 1 GRAM, BID (TWICE DAILY)
     Route: 048
     Dates: start: 20250218, end: 20250223
  3. CYKLOKAPRON [Suspect]
     Active Substance: TRANEXAMIC ACID
     Dosage: 1 GRAM, BID (TWICE DAILY)
     Route: 048
     Dates: start: 20250218, end: 20250223
  4. CYKLOKAPRON [Suspect]
     Active Substance: TRANEXAMIC ACID
     Dosage: 1 GRAM, BID (TWICE DAILY)
     Dates: start: 20250218, end: 20250223
  5. ETHINYL ESTRADIOL\LEVONORGESTREL [Suspect]
     Active Substance: ETHINYL ESTRADIOL\LEVONORGESTREL
     Indication: Menometrorrhagia
     Dosage: 1 DOSAGE FORM, QD
     Dates: start: 202404, end: 20250225
  6. ETHINYL ESTRADIOL\LEVONORGESTREL [Suspect]
     Active Substance: ETHINYL ESTRADIOL\LEVONORGESTREL
     Dosage: 1 DOSAGE FORM, QD
     Route: 048
     Dates: start: 202404, end: 20250225
  7. ETHINYL ESTRADIOL\LEVONORGESTREL [Suspect]
     Active Substance: ETHINYL ESTRADIOL\LEVONORGESTREL
     Dosage: 1 DOSAGE FORM, QD
     Route: 048
     Dates: start: 202404, end: 20250225
  8. ETHINYL ESTRADIOL\LEVONORGESTREL [Suspect]
     Active Substance: ETHINYL ESTRADIOL\LEVONORGESTREL
     Dosage: 1 DOSAGE FORM, QD
     Dates: start: 202404, end: 20250225

REACTIONS (1)
  - Pulmonary embolism [Recovering/Resolving]

NARRATIVE: CASE EVENT DATE: 20250225
